FAERS Safety Report 7210557-3 (Version None)
Quarter: 2011Q1

REPORT INFORMATION
  Report Type: 
  Country: None (occurrence: None)
  Receive Date: 20110105
  Receipt Date: 20101227
  Transmission Date: 20110831
  Serious: Yes (Hospitalization)
  Sender: FDA-Public Use
  Company Number: US-ROCHE-751201

PATIENT
  Sex: Male

DRUGS (2)
  1. XELODA [Suspect]
     Indication: COLON CANCER STAGE III
     Dosage: FREQUENCY: CYCLIC
     Route: 048
  2. PLAVIX [Concomitant]

REACTIONS (7)
  - WEIGHT INCREASED [None]
  - GASTROINTESTINAL ULCER [None]
  - HYPOTENSION [None]
  - DEHYDRATION [None]
  - COLITIS [None]
  - PALMAR-PLANTAR ERYTHRODYSAESTHESIA SYNDROME [None]
  - PROTEIN TOTAL DECREASED [None]
